FAERS Safety Report 4367892-6 (Version None)
Quarter: 2004Q2

REPORT INFORMATION
  Report Type: 
  Country: None (occurrence: None)
  Receive Date: 20040601
  Receipt Date: 20040601
  Transmission Date: 20050107
  Serious: Yes (Life-Threatening, Hospitalization)
  Sender: FDA-Public Use
  Company Number: None

PATIENT
  Age: 47 Year
  Sex: Male
  Weight: 100 kg

DRUGS (22)
  1. EMEND [Suspect]
     Indication: MALIGNANT MELANOMA STAGE IV
     Dosage: 125 MG X 1 ORAL
     Route: 048
     Dates: start: 20040408, end: 20040412
  2. BIOCHEMOTHERAPY [Concomitant]
  3. DACARBAZINE [Concomitant]
  4. VANBLASTINE [Concomitant]
  5. CISPLATIN [Concomitant]
  6. PROLEUKIN [Concomitant]
  7. .. [Concomitant]
  8. INTRON A [Concomitant]
  9. .. [Concomitant]
  10. BENADRYL [Concomitant]
  11. TYLENOL [Concomitant]
  12. REGLAN [Concomitant]
  13. BACTROBAN [Concomitant]
  14. EUCERIN [Concomitant]
  15. PROTONIX [Concomitant]
  16. ATIVAN [Concomitant]
  17. DEMEROL [Concomitant]
  18. ATARAX [Concomitant]
  19. LOMOTIL [Concomitant]
  20. TINCTURE OF OPIUM [Concomitant]
  21. VASELINE [Concomitant]
  22. NEULASTA [Concomitant]

REACTIONS (11)
  - CATHETER RELATED INFECTION [None]
  - COMA [None]
  - FATIGUE [None]
  - GROIN ABSCESS [None]
  - HAEMOGLOBIN DECREASED [None]
  - LETHARGY [None]
  - PLATELET COUNT DECREASED [None]
  - RENAL FAILURE [None]
  - SEPSIS [None]
  - STREPTOCOCCAL INFECTION [None]
  - WHITE BLOOD CELL COUNT DECREASED [None]
